FAERS Safety Report 7814904-0 (Version None)
Quarter: 2011Q4

REPORT INFORMATION
  Report Type: 
  Country: None (occurrence: None)
  Receive Date: 20111014
  Receipt Date: 20111003
  Transmission Date: 20120403
  Serious: Yes (Hospitalization, Other)
  Sender: FDA-Public Use
  Company Number: US-BAYER-2010-001155

PATIENT
  Age: 27 Year
  Sex: Female
  Weight: 83.9 kg

DRUGS (9)
  1. ROBAXIN [Concomitant]
     Indication: MUSCLE SPASMS
     Dosage: UNK UNK, PRN
  2. VICODIN [Concomitant]
     Indication: PAIN
     Route: 048
  3. YASMIN [Suspect]
     Indication: PRODUCT USED FOR UNKNOWN INDICATION
     Dosage: UNK UNK, QD
     Route: 048
     Dates: start: 20060101, end: 20100101
  4. NAPROSYN [Concomitant]
     Indication: PAIN
     Dosage: 500 MG, PRN
     Route: 048
  5. NAPROXEN [Concomitant]
     Route: 048
  6. CELEXA [Concomitant]
     Indication: PREMENSTRUAL SYNDROME
     Dosage: 20 MG, QD
     Route: 048
     Dates: start: 20080101
  7. PHENTERMINE [Concomitant]
     Indication: DECREASED APPETITE
     Dosage: 20 UNK, UNK
     Route: 048
  8. LEXAPRO [Concomitant]
     Indication: DEPRESSION
     Dosage: 10 MG, QD
  9. IBUPROFEN [Concomitant]
     Route: 048

REACTIONS (5)
  - CHOLELITHIASIS [None]
  - BILIARY COLIC [None]
  - PAIN [None]
  - GALLBLADDER INJURY [None]
  - CHOLECYSTITIS CHRONIC [None]
